FAERS Safety Report 7681164-3 (Version None)
Quarter: 2011Q3

REPORT INFORMATION
  Report Type: 
  Country: None (occurrence: None)
  Receive Date: 20110812
  Receipt Date: 20110811
  Transmission Date: 20111222
  Serious: Yes (Hospitalization)
  Sender: FDA-Public Use
  Company Number: JP-ABBOTT-11P-087-0834415-00

PATIENT
  Sex: Female
  Weight: 71 kg

DRUGS (19)
  1. VITAMEDIN [Concomitant]
     Indication: VITAMIN SUPPLEMENTATION
     Dosage: FREQUENCY:  1 V, SID
     Route: 041
     Dates: start: 20100329, end: 20100331
  2. BUFFERIN [Concomitant]
     Indication: PYREXIA
     Dosage: FREQUENCY:  330MG, SID, AS NEEDED
     Dates: start: 20100329, end: 20100331
  3. FLUNITRAZEPAM [Suspect]
     Indication: INSOMNIA
     Dosage: FREQUENCY:  SID
     Route: 048
     Dates: start: 20100310
  4. CARBAMAZEPINE [Suspect]
     Indication: HYPOMANIA
     Route: 048
     Dates: start: 20100315, end: 20100329
  5. BISACODYL [Suspect]
     Indication: CONSTIPATION
     Dosage: FREQUENCY:  SID, AS NEEDED
     Route: 054
     Dates: start: 20100326
  6. SENNOSIDE [Concomitant]
     Indication: CONSTIPATION
     Dosage: FREQUENCY:  SID, AS NEEDED
     Route: 048
     Dates: start: 20100326
  7. CEFSPAN [Concomitant]
     Indication: URINARY TRACT INFECTION
     Route: 048
     Dates: start: 20100329, end: 20100330
  8. CEFTAZIDIME SODIUM [Concomitant]
     Indication: URINARY TRACT INFECTION
     Route: 041
     Dates: start: 20100330, end: 20100331
  9. SUPELON [Concomitant]
     Indication: PYREXIA
     Dosage: FREQUENCY:  1 V, SID
     Dates: start: 20100331
  10. CLARITHROMYCIN [Suspect]
     Indication: PHARYNGITIS
     Route: 048
     Dates: start: 20100311, end: 20100315
  11. DOMIPHEN BROMIDE [Suspect]
     Indication: PHARYNGITIS
     Dosage: FREQUENCY:  SID, AS NEEDED
     Route: 048
     Dates: start: 20100311
  12. NICHOLASE [Concomitant]
     Indication: UPPER RESPIRATORY TRACT INFLAMMATION
     Route: 048
     Dates: start: 20100329, end: 20100331
  13. SERRAPEPTASE [Suspect]
     Indication: PHARYNGITIS
     Route: 048
     Dates: start: 20100311, end: 20100315
  14. ISOTONIC SODIUM CHLORIDE [Concomitant]
     Indication: ANTIBIOTIC THERAPY
     Route: 041
     Dates: start: 20100330, end: 20100331
  15. SERTRALINE HYDROCHLORIDE [Suspect]
     Indication: DEPRESSION
     Dosage: FREQUENCY:  SID
     Dates: start: 20100310
  16. RISPERIDONE [Suspect]
     Indication: INSOMNIA
     Dosage: FREQUENCY:  SID, AS NEEDED
     Route: 048
     Dates: start: 20100312
  17. BITSAN [Concomitant]
     Indication: DYSPEPSIA
     Dosage: FREQUENCY:  SID, AS NEEDED
     Route: 048
     Dates: start: 20100329
  18. ACTIT [Concomitant]
     Indication: PYREXIA
     Dosage: FREQUENCY:  SID
     Route: 041
     Dates: start: 20100329, end: 20100331
  19. CLARITHROMYCIN [Concomitant]
     Indication: UPPER RESPIRATORY TRACT INFLAMMATION
     Route: 048
     Dates: start: 20100329, end: 20100329

REACTIONS (3)
  - LIVER DISORDER [None]
  - HYPERTHERMIA [None]
  - STEVENS-JOHNSON SYNDROME [None]
